FAERS Safety Report 24650334 (Version 1)
Quarter: 2024Q4

REPORT INFORMATION
  Report Type: Spontaneous
  Country: US (occurrence: US)
  Receive Date: 20241122
  Receipt Date: 20241122
  Transmission Date: 20250115
  Serious: Yes (Other)
  Sender: UCB
  Company Number: US-UCBSA-2024059831

PATIENT
  Age: 39 Year
  Sex: Female

DRUGS (2)
  1. CIMZIA [Suspect]
     Active Substance: CERTOLIZUMAB PEGOL
     Indication: Rheumatoid arthritis
     Dosage: 400 MILLIGRAM, EV 4 WEEKS
     Route: 058
     Dates: start: 202403
  2. MIRENA [Concomitant]
     Active Substance: LEVONORGESTREL
     Indication: Intra-uterine contraceptive device insertion
     Dosage: UNK

REACTIONS (1)
  - Rheumatoid arthritis [Not Recovered/Not Resolved]

NARRATIVE: CASE EVENT DATE: 20241001
